FAERS Safety Report 8306417-7 (Version None)
Quarter: 2012Q2

REPORT INFORMATION
  Report Type: 
  Country: None (occurrence: None)
  Receive Date: 20120423
  Receipt Date: 20120409
  Transmission Date: 20120825
  Serious: Yes (Death, Hospitalization, Disabling, Other)
  Sender: FDA-Public Use
  Company Number: US-MYLANLABS-2009AC000070

PATIENT
  Age: 79 Year
  Sex: Male

DRUGS (26)
  1. ATIVAN [Concomitant]
  2. ASCORBIC ACID [Concomitant]
  3. SULFAMETHOXAZOLE [Concomitant]
  4. METFORMIN HCL [Concomitant]
  5. NITROFURAN [Concomitant]
  6. COLACE [Concomitant]
  7. DILANTIN [Concomitant]
  8. AMLODIPINE [Concomitant]
  9. FERROUS SULFATE TAB [Concomitant]
  10. TOPROL-XL [Concomitant]
  11. NORVASC [Concomitant]
  12. JANTOVEN [Concomitant]
  13. NAMENDA [Concomitant]
  14. TIMOLOL MALEATE [Concomitant]
  15. THEOPHYLLINE [Concomitant]
  16. METOPROLOL TARTRATE [Concomitant]
  17. ZOLPIDEM [Concomitant]
  18. LASIX [Concomitant]
  19. ARICEPT [Concomitant]
  20. WARFARIN SODIUM [Concomitant]
  21. MANDELAMINE [Concomitant]
  22. POTASSIUM CHLORIDE [Concomitant]
  23. LOTREL [Concomitant]
  24. FUROSEMIDE [Concomitant]
  25. DIGOXIN [Suspect]
     Indication: ATRIAL FIBRILLATION
     Route: 048
     Dates: start: 20030822, end: 20080314
  26. LUMIGAN [Concomitant]

REACTIONS (40)
  - UNRESPONSIVE TO STIMULI [None]
  - CONVULSION [None]
  - DEATH [None]
  - PAIN [None]
  - ILL-DEFINED DISORDER [None]
  - CARDIAC FAILURE CONGESTIVE [None]
  - DIARRHOEA [None]
  - OEDEMA PERIPHERAL [None]
  - ATRIAL FLUTTER [None]
  - HAEMORRHOIDS [None]
  - INJURY [None]
  - WHEEZING [None]
  - MALAISE [None]
  - ARRHYTHMIA [None]
  - ANHEDONIA [None]
  - FALL [None]
  - DIABETES MELLITUS [None]
  - ANXIETY [None]
  - ANAEMIA [None]
  - DYSPNOEA [None]
  - PERIPHERAL VASCULAR DISORDER [None]
  - CHEST PAIN [None]
  - HOSPITALISATION [None]
  - ECONOMIC PROBLEM [None]
  - ATRIAL FIBRILLATION [None]
  - BALANCE DISORDER [None]
  - DEMENTIA [None]
  - DECREASED APPETITE [None]
  - FATIGUE [None]
  - SENILE DEMENTIA [None]
  - CONFUSIONAL STATE [None]
  - MITRAL VALVE DISEASE [None]
  - HYPERTENSION [None]
  - MENTAL STATUS CHANGES [None]
  - BENIGN GASTRIC NEOPLASM [None]
  - EMOTIONAL DISTRESS [None]
  - SICK SINUS SYNDROME [None]
  - BRADYCARDIA [None]
  - COLONIC POLYP [None]
  - DEMENTIA ALZHEIMER'S TYPE [None]
